FAERS Safety Report 7878661-4 (Version None)
Quarter: 2011Q4

REPORT INFORMATION
  Report Type: 
  Country: None (occurrence: None)
  Receive Date: 20111018
  Receipt Date: 20110819
  Transmission Date: 20120403
  Serious: No
  Sender: FDA-Public Use
  Company Number: 2011P1008419

PATIENT
  Age: 63 Year
  Sex: Male
  Weight: 83.9154 kg

DRUGS (9)
  1. LIPITOR [Concomitant]
  2. FENTANYL-75 [Suspect]
     Indication: PAIN
     Dosage: 1 PATCH;Q72H
  3. FENTANYL [Suspect]
     Indication: PAIN
     Dates: start: 20110812
  4. MORPHINE [Concomitant]
  5. SENNA [Concomitant]
  6. LYRICA [Concomitant]
  7. METOPROLOL [Concomitant]
  8. CIPRO [Concomitant]
  9. PLAVIX [Concomitant]

REACTIONS (3)
  - DYSPNOEA [None]
  - SPEECH DISORDER [None]
  - CONFUSIONAL STATE [None]
